FAERS Safety Report 7093211-0 (Version None)
Quarter: 2010Q4

REPORT INFORMATION
  Report Type: 
  Country: None (occurrence: None)
  Receive Date: 20101110
  Receipt Date: 20101027
  Transmission Date: 20110411
  Serious: Yes (Hospitalization)
  Sender: FDA-Public Use
  Company Number: AU-CELGENEUS-008-20785-10102723

PATIENT
  Sex: Female

DRUGS (4)
  1. THALOMID [Suspect]
     Route: 048
  2. THALOMID [Suspect]
     Route: 048
     Dates: start: 20101027
  3. PREDNISONE [Concomitant]
     Route: 065
  4. MELPHALAN HYDROCHLORIDE [Concomitant]
     Route: 065

REACTIONS (1)
  - FEMORAL NECK FRACTURE [None]
